FAERS Safety Report 23354856 (Version 1)
Quarter: 2024Q1

REPORT INFORMATION
  Report Type: Spontaneous
  Country: NL (occurrence: NL)
  Receive Date: 20240101
  Receipt Date: 20240101
  Transmission Date: 20240410
  Serious: Yes (Hospitalization, Other)
  Sender: FDA-Public Use
  Company Number: NL-BoehringerIngelheim-2023-BI-280131

PATIENT
  Age: 87 Year
  Sex: Female

DRUGS (9)
  1. DABIGATRAN [Suspect]
     Active Substance: DABIGATRAN
     Indication: Atrial fibrillation
  2. ALLOPURINOL [Concomitant]
     Active Substance: ALLOPURINOL
     Indication: Product used for unknown indication
  3. ATORVASTATIN [Concomitant]
     Active Substance: ATORVASTATIN
     Indication: Product used for unknown indication
  4. COLCHICINE [Concomitant]
     Active Substance: COLCHICINE
     Indication: Product used for unknown indication
  5. LISINOPRIL [Concomitant]
     Active Substance: LISINOPRIL
     Indication: Product used for unknown indication
  6. POLYETHYLENE GLYCOLS [Concomitant]
     Active Substance: POLYETHYLENE GLYCOLS
     Indication: Product used for unknown indication
  7. METOPROLOL [Concomitant]
     Active Substance: METOPROLOL
     Indication: Product used for unknown indication
  8. ACETAMINOPHEN [Concomitant]
     Active Substance: ACETAMINOPHEN
     Indication: Product used for unknown indication
  9. VITAMIN K [Concomitant]
     Active Substance: PHYTONADIONE
     Indication: Vitamin K deficiency

REACTIONS (14)
  - Vomiting [Unknown]
  - Dyspnoea [Unknown]
  - Syncope [Unknown]
  - Rhonchi [Unknown]
  - Normocytic anaemia [Unknown]
  - Muscle mass [Unknown]
  - Metabolic acidosis [Unknown]
  - Hypotension [Recovered/Resolved]
  - Pneumonia aspiration [Unknown]
  - Nausea [Unknown]
  - Pneumonia [Unknown]
  - Rectal haemorrhage [Unknown]
  - Cough [Unknown]
  - Renal impairment [Unknown]
